FAERS Safety Report 13212638 (Version 11)
Quarter: 2018Q1

REPORT INFORMATION
  Report Type: Report from Study
  Country: US (occurrence: US)
  Receive Date: 20170210
  Receipt Date: 20180121
  Transmission Date: 20180508
  Serious: Yes (Hospitalization, Other)
  Sender: FDA-Public Use
  Company Number: PHHY2016US181895

PATIENT
  Age: 37 Year
  Sex: Male
  Weight: 72.8 kg

DRUGS (28)
  1. TOBI PODHALER [Suspect]
     Active Substance: TOBRAMYCIN
     Indication: CYSTIC FIBROSIS LUNG
     Dosage: 300 MG, BID
     Route: 055
  2. CAYSTON [Suspect]
     Active Substance: AZTREONAM
     Dosage: 75 MG, BID
     Route: 055
     Dates: start: 20170930
  3. OMEPRAZOLE. [Concomitant]
     Active Substance: OMEPRAZOLE
     Dosage: 40 MG, BID
     Route: 048
     Dates: start: 20171005
  4. COLISTIN [Concomitant]
     Active Substance: COLISTIN
     Indication: PRODUCT USED FOR UNKNOWN INDICATION
     Dosage: 75 MG, BID
     Route: 055
     Dates: start: 20171012, end: 20171013
  5. TOBI PODHALER [Suspect]
     Active Substance: TOBRAMYCIN
     Indication: PSEUDOMONAS INFECTION
     Dosage: 112 OT, BID
     Route: 055
     Dates: start: 20160401, end: 20160428
  6. CAYSTON [Suspect]
     Active Substance: AZTREONAM
     Indication: PRODUCT USED FOR UNKNOWN INDICATION
     Dosage: 75 MG, TID
     Route: 055
     Dates: start: 20160307, end: 20160331
  7. CAYSTON [Suspect]
     Active Substance: AZTREONAM
     Dosage: 75 MG, TID
     Route: 055
     Dates: start: 20160501, end: 20160530
  8. TOBI PODHALER [Suspect]
     Active Substance: TOBRAMYCIN
     Dosage: 300 MG, QD
     Route: 055
     Dates: start: 20170301, end: 20170327
  9. TOBI [Suspect]
     Active Substance: TOBRAMYCIN
     Indication: CYSTIC FIBROSIS
     Dosage: 300 OT, BID
     Route: 055
     Dates: start: 20160531, end: 20160604
  10. TOBI [Suspect]
     Active Substance: TOBRAMYCIN
     Dosage: 300 OT, BID
     Route: 055
     Dates: start: 20170305, end: 20170326
  11. TOBI [Suspect]
     Active Substance: TOBRAMYCIN
     Dosage: 300 MG, BID
     Route: 055
     Dates: start: 20171003
  12. CAYSTON [Suspect]
     Active Substance: AZTREONAM
     Dosage: 75 OT, TID
     Route: 065
     Dates: start: 20160702, end: 20160801
  13. CEFEPIME [Suspect]
     Active Substance: CEFEPIME HYDROCHLORIDE
     Indication: PRODUCT USED FOR UNKNOWN INDICATION
     Dosage: 2 GM Q8H
     Route: 042
     Dates: start: 20170328, end: 20170330
  14. CAYSTON [Suspect]
     Active Substance: AZTREONAM
     Dosage: 75 MG, BID
     Route: 055
     Dates: start: 20170905, end: 20171003
  15. ALBUTEROL. [Concomitant]
     Active Substance: ALBUTEROL
     Indication: CYSTIC FIBROSIS LUNG
     Dosage: 2.5 MG, PRN
     Route: 055
  16. OMEPRAZOLE. [Concomitant]
     Active Substance: OMEPRAZOLE
     Indication: GASTROOESOPHAGEAL REFLUX DISEASE
     Dosage: 40 MG, BID
     Route: 048
     Dates: start: 2015
  17. TOBI [Suspect]
     Active Substance: TOBRAMYCIN
     Dosage: 300 OT, BID
     Route: 055
     Dates: start: 20161209, end: 20170108
  18. TOBI [Suspect]
     Active Substance: TOBRAMYCIN
     Indication: PSEUDOMONAS INFECTION
     Dosage: 300 OT, BID
     Route: 055
     Dates: start: 20160620, end: 20160701
  19. TOBI [Suspect]
     Active Substance: TOBRAMYCIN
     Dosage: 300 OT, BID
     Route: 055
     Dates: start: 20161101, end: 20161129
  20. TOBI [Suspect]
     Active Substance: TOBRAMYCIN
     Dosage: 300 OT, BID
     Route: 055
     Dates: start: 20170416, end: 20170430
  21. TOBI [Suspect]
     Active Substance: TOBRAMYCIN
     Dosage: 300 MG, BID
     Route: 055
     Dates: start: 20171004
  22. TOBI [Suspect]
     Active Substance: TOBRAMYCIN
     Dosage: 720 MG, QD
     Route: 042
     Dates: start: 20171006
  23. CAYSTON [Suspect]
     Active Substance: AZTREONAM
     Dosage: 75 MG, TID
     Route: 055
     Dates: start: 20160615, end: 20160619
  24. REGLAN [Concomitant]
     Active Substance: METOCLOPRAMIDE HYDROCHLORIDE
     Dosage: 5 MG, TID
     Route: 048
     Dates: start: 20171005
  25. CAYSTON [Suspect]
     Active Substance: AZTREONAM
     Dosage: 75 MG, TID
     Route: 055
     Dates: start: 201701, end: 20170109
  26. CAYSTON [Suspect]
     Active Substance: AZTREONAM
     Dosage: 75 MG, BID
     Route: 055
     Dates: start: 20171014, end: 20171111
  27. ALBUTEROL. [Concomitant]
     Active Substance: ALBUTEROL
     Dosage: 2.5 MG, 4 PER DAY/PRN
     Route: 055
     Dates: start: 20171007
  28. REGLAN [Concomitant]
     Active Substance: METOCLOPRAMIDE HYDROCHLORIDE
     Indication: IMPAIRED GASTRIC EMPTYING
     Dosage: 5 MG, TID
     Route: 048
     Dates: start: 2014

REACTIONS (37)
  - Haemoptysis [Recovered/Resolved]
  - Haemoptysis [Recovered/Resolved]
  - Infective pulmonary exacerbation of cystic fibrosis [Recovered/Resolved]
  - Musculoskeletal chest pain [Unknown]
  - Cystic fibrosis [Recovered/Resolved]
  - Chest pain [Recovered/Resolved]
  - Condition aggravated [Recovered/Resolved]
  - Sputum discoloured [Unknown]
  - Sputum increased [Unknown]
  - Condition aggravated [Unknown]
  - Pruritus [Unknown]
  - Infective pulmonary exacerbation of cystic fibrosis [Recovering/Resolving]
  - Diarrhoea [Unknown]
  - Staphylococcus test positive [Unknown]
  - Cystic fibrosis [Recovered/Resolved]
  - Secretion discharge [Unknown]
  - Pyrexia [Unknown]
  - Swelling [Unknown]
  - Productive cough [Unknown]
  - Asthenia [Unknown]
  - Cystic fibrosis [Recovered/Resolved]
  - Haemoptysis [Unknown]
  - Cough [Unknown]
  - Pseudomonas test positive [Unknown]
  - Cystic fibrosis [Recovered/Resolved]
  - Decreased appetite [Unknown]
  - Urticaria [Unknown]
  - Cystic fibrosis [Recovered/Resolved]
  - Headache [Unknown]
  - Cystic fibrosis [Recovered/Resolved]
  - Cystic fibrosis [Recovered/Resolved]
  - Chest discomfort [Unknown]
  - Cystic fibrosis [Recovered/Resolved]
  - Dyspnoea [Not Recovered/Not Resolved]
  - Infective pulmonary exacerbation of cystic fibrosis [Recovered/Resolved]
  - Night sweats [Unknown]
  - Weight increased [Unknown]

NARRATIVE: CASE EVENT DATE: 20160530
